FAERS Safety Report 14903871 (Version 1)
Quarter: 2018Q2

REPORT INFORMATION
  Report Type: Spontaneous
  Country: US (occurrence: US)
  Receive Date: 20180516
  Receipt Date: 20180516
  Transmission Date: 20180711
  Serious: No
  Sender: FDA-Public Use
  Company Number: US-LUNDBECK-DKLU2047743

PATIENT
  Age: 42 Year
  Sex: Female

DRUGS (3)
  1. NORTHERA [Suspect]
     Active Substance: DROXIDOPA
     Indication: SYNCOPE
  2. NORTHERA [Suspect]
     Active Substance: DROXIDOPA
     Indication: ORTHOSTATIC HYPOTENSION
     Route: 048
     Dates: start: 20180422, end: 201804
  3. NORTHERA [Suspect]
     Active Substance: DROXIDOPA
     Indication: AUTONOMIC NEUROPATHY
     Route: 048
     Dates: start: 20180417

REACTIONS (12)
  - Bronchitis [Unknown]
  - Cold sweat [Unknown]
  - Nausea [Unknown]
  - Abdominal pain [Recovering/Resolving]
  - Headache [Unknown]
  - Vomiting [Recovering/Resolving]
  - Malaise [Unknown]
  - Drug dose omission [Unknown]
  - Feeling abnormal [Unknown]
  - Abdominal pain upper [Unknown]
  - Diarrhoea [Unknown]
  - Drug ineffective [Unknown]

NARRATIVE: CASE EVENT DATE: 201804
